FAERS Safety Report 9698636 (Version 1)
Quarter: 2013Q4

REPORT INFORMATION
  Report Type: Spontaneous
  Country: DK (occurrence: DK)
  Receive Date: 20131120
  Receipt Date: 20131120
  Transmission Date: 20140711
  Serious: Yes (Other)
  Sender: FDA-Public Use
  Company Number: DK-BRISTOL-MYERS SQUIBB COMPANY-19800523

PATIENT
  Age: 29 Year
  Sex: Female

DRUGS (2)
  1. KENALOG INJ [Suspect]
     Indication: ARTHRITIS
  2. LIDOCAINE [Concomitant]
     Indication: LOCAL ANAESTHESIA
     Dates: start: 20101124

REACTIONS (2)
  - Lipoatrophy [Unknown]
  - Tendon rupture [Recovering/Resolving]
